FAERS Safety Report 21587025 (Version 1)
Quarter: 2022Q4

REPORT INFORMATION
  Report Type: Spontaneous
  Country: US (occurrence: US)
  Receive Date: 20221113
  Receipt Date: 20221113
  Transmission Date: 20230112
  Serious: Yes (Other)
  Sender: FDA-Public Use
  Company Number: US-JNJFOC-20221115400

PATIENT
  Age: 51 Year
  Sex: Female
  Weight: 53.5 kg

DRUGS (4)
  1. OPSUMIT [Suspect]
     Active Substance: MACITENTAN
     Indication: Product used for unknown indication
     Route: 048
  2. ORENITRAM [Suspect]
     Active Substance: TREPROSTINIL
     Indication: Pulmonary arterial hypertension
     Route: 048
     Dates: start: 20200123
  3. ADEMPAS [Suspect]
     Active Substance: RIOCIGUAT
     Indication: Product used for unknown indication
     Route: 065
  4. TREPROSTINIL [Suspect]
     Active Substance: TREPROSTINIL
     Indication: Pulmonary arterial hypertension
     Route: 048
     Dates: start: 20200123

REACTIONS (8)
  - Respiratory failure [Unknown]
  - Oxygen saturation decreased [Unknown]
  - Drug withdrawal syndrome [Unknown]
  - Nausea [Unknown]
  - Diarrhoea [Unknown]
  - Dyspnoea [Unknown]
  - Steatorrhoea [Unknown]
  - Dizziness [Unknown]
